FAERS Safety Report 23538883 (Version 1)
Quarter: 2024Q1

REPORT INFORMATION
  Report Type: Spontaneous
  Country: US (occurrence: US)
  Receive Date: 20240219
  Receipt Date: 20240219
  Transmission Date: 20240410
  Serious: Yes (Other)
  Sender: FDA-Public Use
  Company Number: US-002147023-NVSC2024US031364

PATIENT
  Sex: Male

DRUGS (2)
  1. MEKINIST [Suspect]
     Active Substance: TRAMETINIB DIMETHYL SULFOXIDE
     Indication: Lung carcinoma cell type unspecified recurrent
     Dosage: 2 MG, QD
     Route: 048
     Dates: start: 202211
  2. TAFINLAR [Suspect]
     Active Substance: DABRAFENIB MESYLATE
     Indication: Lung carcinoma cell type unspecified recurrent
     Dosage: 75 MG, BID
     Route: 048
     Dates: start: 202211

REACTIONS (1)
  - Cataract [Unknown]
